FAERS Safety Report 15759885 (Version 1)
Quarter: 2018Q4

REPORT INFORMATION
  Report Type: Spontaneous
  Country: US (occurrence: US)
  Receive Date: 20181226
  Receipt Date: 20181226
  Transmission Date: 20190205
  Serious: No
  Sender: FDA-Public Use
  Company Number: US-TEVA-2018-US-987853

PATIENT
  Sex: Female

DRUGS (1)
  1. NITROGLYCERIN SUBL [Suspect]
     Active Substance: NITROGLYCERIN
     Route: 065

REACTIONS (1)
  - Drug hypersensitivity [Unknown]
